FAERS Safety Report 17129765 (Version 1)
Quarter: 2019Q4

REPORT INFORMATION
  Report Type: Spontaneous
  Country: DE (occurrence: DE)
  Receive Date: 20191209
  Receipt Date: 20191209
  Transmission Date: 20200122
  Serious: Yes (Other)
  Sender: FDA-Public Use
  Company Number: DE-SA-2019SA337161

PATIENT
  Age: 43 Year
  Sex: Male

DRUGS (2)
  1. ANTI-THYMOCYTE GLOBULIN (RABBIT) NOS [Suspect]
     Active Substance: LAPINE T-LYMPHOCYTE IMMUNE GLOBULIN
     Indication: BONE MARROW CONDITIONING REGIMEN
  2. CYCLOPHOSPHAMIDE. [Concomitant]
     Active Substance: CYCLOPHOSPHAMIDE
     Indication: BONE MARROW CONDITIONING REGIMEN

REACTIONS (10)
  - Aplasia [Recovered/Resolved]
  - Pyrexia [Recovered/Resolved]
  - Cytomegalovirus infection [Recovered/Resolved]
  - Herpes simplex [Recovered/Resolved]
  - Transplant failure [Recovered/Resolved]
  - Delayed engraftment [Recovered/Resolved]
  - Cytopenia [Recovered/Resolved]
  - Transplant dysfunction [Recovered/Resolved]
  - Tongue ulceration [Recovered/Resolved]
  - Mucosal inflammation [Recovered/Resolved]
